FAERS Safety Report 13008767 (Version 2)
Quarter: 2019Q4

REPORT INFORMATION
  Report Type: Spontaneous
  Country: US (occurrence: US)
  Receive Date: 20161208
  Receipt Date: 20191010
  Transmission Date: 20200122
  Serious: Yes (Hospitalization, Other)
  Sender: FDA-Public Use
  Company Number: US-009507513-1611USA013943

PATIENT
  Age: 77 Year
  Sex: Male
  Weight: 68.4 kg

DRUGS (36)
  1. PHENYLEPHRINE [Concomitant]
     Active Substance: PHENYLEPHRINE HYDROCHLORIDE
     Indication: PROPHYLAXIS
     Dosage: UNK
  2. METFORMIN [Concomitant]
     Active Substance: METFORMIN HYDROCHLORIDE
     Dosage: UNK
     Dates: start: 20090416, end: 20160928
  3. BUPIVACAINE. [Concomitant]
     Active Substance: BUPIVACAINE
     Dosage: UNK
     Dates: start: 20160930, end: 20160930
  4. BUPIVACAINE HYDROCHLORIDE (+) EPINEPHRINE BITARTRATE [Concomitant]
     Dosage: UNK
     Dates: start: 20160930, end: 20160930
  5. LIDOCAINE HYDROCHLORIDE. [Suspect]
     Active Substance: LIDOCAINE HYDROCHLORIDE
     Indication: ANAESTHETIC PREMEDICATION
     Dosage: 6 ML/HR, 8 TIMES,THEN CONTINUOUS FROM 08:30 TO 14:30
     Route: 042
     Dates: start: 20160930, end: 20160930
  6. ZOFRAN [Concomitant]
     Active Substance: ONDANSETRON HYDROCHLORIDE
     Dosage: UNK
     Dates: start: 20160930, end: 20160930
  7. LISINOPRIL. [Concomitant]
     Active Substance: LISINOPRIL
     Dosage: UNK
     Dates: start: 20111028
  8. GELATIN SPONGE, ABSORBABLE [Concomitant]
     Active Substance: GELATIN
     Dosage: UNK
     Dates: start: 20160930, end: 20160930
  9. VANCOMYCIN [Concomitant]
     Active Substance: VANCOMYCIN
     Dosage: UNK
     Dates: start: 20160930, end: 20160930
  10. DECADRON [Suspect]
     Active Substance: DEXAMETHASONE
     Indication: INFLAMMATION
     Dosage: 4 MG, ONCE (SINGLE)
     Dates: start: 20160930, end: 20160930
  11. FENTANYL CITRATE. [Suspect]
     Active Substance: FENTANYL CITRATE
     Indication: ANAESTHETIC PREMEDICATION
     Dosage: 425 MICROGRAM, GIVEN AT MULTIPLE TIMES
     Route: 042
     Dates: start: 20160930, end: 20160930
  12. ASPIRIN. [Concomitant]
     Active Substance: ASPIRIN
     Dosage: UNK
     Dates: start: 2013, end: 20160920
  13. CALCIUM CITRATE [Concomitant]
     Active Substance: CALCIUM CITRATE
     Dosage: UNK
     Dates: start: 20160930
  14. ROCURONIUM BROMIDE. [Suspect]
     Active Substance: ROCURONIUM BROMIDE
     Indication: ANAESTHETIC PREMEDICATION
     Dosage: 30 MG,ONCE
     Route: 042
     Dates: start: 20160930, end: 20160930
  15. KETAMINE HYDROCHLORIDE. [Suspect]
     Active Substance: KETAMINE HYDROCHLORIDE
     Indication: ANAESTHETIC PREMEDICATION
     Dosage: TOTAL 110 MG, CONTINUOUS FROM 08:30 TO 14:25, INTRAVENOUS
     Route: 042
     Dates: start: 20160930, end: 20160930
  16. METHADONE HYDROCHLORIDE. [Suspect]
     Active Substance: METHADONE HYDROCHLORIDE
     Indication: PAIN
     Dosage: 5 MG, SINGLE
     Dates: start: 20160930, end: 20160930
  17. SIMVASTATIN. [Concomitant]
     Active Substance: SIMVASTATIN
     Dosage: UNK
     Dates: start: 20100101
  18. CEFAZOLIN [Concomitant]
     Active Substance: CEFAZOLIN
     Dosage: UNK
     Dates: start: 20160930, end: 20161002
  19. MUPIROCIN. [Concomitant]
     Active Substance: MUPIROCIN
     Dosage: OINTMENT, 2%
     Dates: start: 20160930, end: 20160930
  20. POLYMYXIN B SULFATE. [Concomitant]
     Active Substance: POLYMYXIN B SULFATE
     Dosage: UNK
     Dates: start: 20160930, end: 20160930
  21. SODIUM CHLORIDE. [Concomitant]
     Active Substance: SODIUM CHLORIDE
     Dosage: UNK
     Dates: start: 20160930, end: 20161002
  22. METOCLOPRAMIDE. [Concomitant]
     Active Substance: METOCLOPRAMIDE
     Dosage: UNK
     Dates: start: 20160930, end: 20161001
  23. HYDROMORPHONE [Concomitant]
     Active Substance: HYDROMORPHONE
     Dosage: UNK
     Dates: start: 20160930, end: 20161001
  24. HYDROCHLOROTHIAZIDE. [Concomitant]
     Active Substance: HYDROCHLOROTHIAZIDE
     Dosage: UNK
     Dates: start: 19950310, end: 20160929
  25. THROMBIN [Concomitant]
     Active Substance: THROMBIN
     Dosage: UNK
     Dates: start: 20160930, end: 20160930
  26. BACITRACIN. [Concomitant]
     Active Substance: BACITRACIN
     Dosage: UNK
     Dates: start: 20160930, end: 20160930
  27. GABAPENTIN. [Concomitant]
     Active Substance: GABAPENTIN
     Dosage: UNK
     Dates: start: 20160930, end: 20160930
  28. CHLORHEXIDINE GLUCONATE. [Concomitant]
     Active Substance: CHLORHEXIDINE GLUCONATE
     Dosage: UNK
     Dates: start: 20150930
  29. NORCO [Concomitant]
     Active Substance: ACETAMINOPHEN\HYDROCODONE BITARTRATE
     Dosage: UNK
     Dates: start: 20160930, end: 20161002
  30. SENNOSIDES. [Concomitant]
     Active Substance: SENNOSIDES
     Dosage: UNK
     Dates: start: 20160930, end: 20161002
  31. HYDRALAZINE [Concomitant]
     Active Substance: HYDRALAZINE HYDROCHLORIDE
     Dosage: UNK
     Dates: start: 20160930, end: 20160930
  32. PROPOFOL. [Suspect]
     Active Substance: PROPOFOL
     Indication: ANAESTHETIC PREMEDICATION
     Dosage: TOTAL 1240 MG, GIVEN AT 4 MULTIPLE TIMES, THEN CONTINUOUS FROM 08:50 TO 14:30
     Route: 042
     Dates: start: 20160930, end: 20160930
  33. ACETAMINOPHEN. [Concomitant]
     Active Substance: ACETAMINOPHEN
     Dosage: UNK
     Dates: start: 20160930
  34. DOCUSATE SODIUM. [Concomitant]
     Active Substance: DOCUSATE SODIUM
     Dosage: UNK
     Dates: start: 20160930, end: 20161002
  35. FAMOTIDINE. [Concomitant]
     Active Substance: FAMOTIDINE
     Dosage: UNK
     Dates: start: 20160930
  36. CALCIUM CHLORIDE (+) POTASSIUM CHLORIDE (+) SODIUM CHLORIDE (+) SODIUM [Concomitant]
     Active Substance: CALCIUM CHLORIDE\POTASSIUM CHLORIDE\SODIUM CHLORIDE\SODIUM LACTATE
     Dosage: UNK
     Dates: start: 20160930, end: 20160930

REACTIONS (3)
  - Cementoplasty [Unknown]
  - Postoperative delirium [Recovered/Resolved]
  - Vertebroplasty [Unknown]

NARRATIVE: CASE EVENT DATE: 20161001
